FAERS Safety Report 6536557-4 (Version None)
Quarter: 2010Q1

REPORT INFORMATION
  Report Type: 
  Country: None (occurrence: None)
  Receive Date: 20100106
  Receipt Date: 20091216
  Transmission Date: 20100710
  Serious: Yes (Hospitalization)
  Sender: FDA-Public Use
  Company Number: B0614646A

PATIENT
  Age: 46 Year
  Sex: Male

DRUGS (4)
  1. FLUTICASONE PROPIONATE [Suspect]
     Indication: ASTHMA
     Dosage: 1000 MCG / TWICE PER DAY / INHALED
     Route: 055
  2. RITONAVIR [Suspect]
     Indication: HIV INFECTION
  3. ATAZANAVIR [Suspect]
     Indication: HIV INFECTION
  4. SALMETEROL XINAFOATE [Concomitant]

REACTIONS (6)
  - AMYOTROPHY [None]
  - DRUG INTERACTION [None]
  - OEDEMA PERIPHERAL [None]
  - OVERDOSE [None]
  - PNEUMONIA [None]
  - RESPIRATORY DISTRESS [None]
